FAERS Safety Report 8329292-3 (Version None)
Quarter: 2012Q2

REPORT INFORMATION
  Report Type: 
  Country: None (occurrence: None)
  Receive Date: 20120502
  Receipt Date: 20110810
  Transmission Date: 20120825
  Serious: Yes (Other)
  Sender: FDA-Public Use
  Company Number: US-ASTRAZENECA-2011SE47737

PATIENT
  Sex: Female

DRUGS (2)
  1. LIPITOR [Concomitant]
  2. FASLODEX [Suspect]
     Route: 030

REACTIONS (2)
  - METASTASES TO BONE [None]
  - METASTASES TO LIVER [None]
